FAERS Safety Report 18386824 (Version 1)
Quarter: 2020Q4

REPORT INFORMATION
  Report Type: Spontaneous
  Country: NL (occurrence: NL)
  Receive Date: 20201015
  Receipt Date: 20201015
  Transmission Date: 20210114
  Serious: Yes (Hospitalization)
  Sender: FDA-Public Use
  Company Number: NL-ASTRAZENECA-2020SF30137

PATIENT
  Age: 64 Year
  Sex: Male
  Weight: 80 kg

DRUGS (6)
  1. OLANZAPINE. [Concomitant]
     Active Substance: OLANZAPINE
     Dosage: SMELTTABLET, 20 MG (MILLIGRAM)
  2. BRILIQUE [Suspect]
     Active Substance: TICAGRELOR
     Indication: MYOCARDIAL INFARCTION
     Route: 048
     Dates: start: 20200907, end: 20200921
  3. FUROSEMIDE. [Concomitant]
     Active Substance: FUROSEMIDE
     Dosage: TABLET, 40 MG (MILLIGRAM)
     Route: 065
  4. FUROSEMIDE INJECTIEVLST [Concomitant]
     Dosage: INJECTION FLUID, 10 MG/ML (MILLIGRAM PER MILLILITER)
  5. ACETYLSALICYLZUUR [Concomitant]
     Active Substance: ASPIRIN
     Dosage: TABLET, 80 MG (MILLIGRAM)
     Route: 065
  6. LITHIUM CARBONAAT [Concomitant]
     Active Substance: LITHIUM CARBONATE
     Dosage: REGULATED RELEASE TABLET, 400 MG (MILLIGRAM)

REACTIONS (2)
  - Conduction disorder [Recovered/Resolved]
  - Sinus arrest [Recovered/Resolved]

NARRATIVE: CASE EVENT DATE: 20200918
